FAERS Safety Report 17039894 (Version 2)
Quarter: 2019Q4

REPORT INFORMATION
  Report Type: Spontaneous
  Country: JP (occurrence: JP)
  Receive Date: 20191116
  Receipt Date: 20191204
  Transmission Date: 20200122
  Serious: Yes (Life-Threatening, Hospitalization, Other)
  Sender: FDA-Public Use
  Company Number: JP-ACCORD-160794

PATIENT
  Age: 46 Year
  Sex: Female

DRUGS (2)
  1. OXALIPLATIN. [Suspect]
     Active Substance: OXALIPLATIN
     Indication: RECTAL CANCER
     Dosage: ON DAY 0
     Dates: start: 201707
  2. CAPECITABINE. [Suspect]
     Active Substance: CAPECITABINE
     Indication: RECTAL CANCER
     Dosage: BID,DAY 0 EVENING-DAY 14 MORNING
     Dates: start: 201707

REACTIONS (3)
  - Thrombocytopenia [Recovered/Resolved]
  - Anaphylactic reaction [Recovered/Resolved]
  - Drug-induced liver injury [Recovered/Resolved]
